FAERS Safety Report 4288231-5 (Version None)
Quarter: 2004Q1

REPORT INFORMATION
  Report Type: 
  Country: None (occurrence: None)
  Receive Date: 20040209
  Receipt Date: 20030910
  Transmission Date: 20041129
  Serious: No
  Sender: FDA-Public Use
  Company Number: US-GLAXOSMITHKLINE-A0425334A

PATIENT
  Age: 66 Year
  Sex: Female

DRUGS (6)
  1. PAXIL [Suspect]
     Dosage: 20MG PER DAY
     Route: 048
     Dates: start: 20030826, end: 20031001
  2. PREMARIN [Concomitant]
  3. SYNTHROID [Concomitant]
  4. HYDROCHLOROTHIAZIDE [Concomitant]
  5. ACCUPRIL [Concomitant]
  6. MEDROXYPROGESTERONE [Concomitant]

REACTIONS (5)
  - CONFUSIONAL STATE [None]
  - DRY MOUTH [None]
  - LETHARGY [None]
  - PALPITATIONS [None]
  - SOMNOLENCE [None]
